FAERS Safety Report 17717100 (Version 4)
Quarter: 2020Q2

REPORT INFORMATION
  Report Type: Spontaneous
  Country: US (occurrence: US)
  Receive Date: 20200428
  Receipt Date: 20200513
  Transmission Date: 20200714
  Serious: No
  Sender: FDA-Public Use
  Company Number: US-PFIZER INC-2020169107

PATIENT
  Age: 87 Year
  Sex: Female
  Weight: 77.11 kg

DRUGS (4)
  1. LYRICA [Suspect]
     Active Substance: PREGABALIN
     Indication: SCIATIC NERVE INJURY
     Dosage: 50 MG, 3X/DAY
     Route: 048
     Dates: start: 2008
  2. LYRICA [Suspect]
     Active Substance: PREGABALIN
     Indication: NEUROPATHY PERIPHERAL
     Dosage: 50 MG, 3X/DAY
     Route: 048
     Dates: start: 20200501
  3. LYRICA [Suspect]
     Active Substance: PREGABALIN
     Indication: PAIN
  4. LYRICA [Suspect]
     Active Substance: PREGABALIN
     Indication: NERVE INJURY

REACTIONS (1)
  - No adverse event [Unknown]
